FAERS Safety Report 19479111 (Version 2)
Quarter: 2021Q3

REPORT INFORMATION
  Report Type: Spontaneous
  Country: RU (occurrence: RU)
  Receive Date: 20210630
  Receipt Date: 20210712
  Transmission Date: 20211014
  Serious: Yes (Other)
  Sender: FDA-Public Use
  Company Number: RU-FRESENIUS KABI-FK202106596

PATIENT
  Age: 14 Year
  Sex: Male

DRUGS (18)
  1. CISPLATIN (MANUFACTURER UNKNOWN) [Suspect]
     Active Substance: CISPLATIN
     Dosage: SINGLE DOSE?20 MG / M2 / DAY FOR 3 DAYS
     Route: 065
     Dates: start: 201807
  2. INOSINE PRANOBEX [Concomitant]
     Active Substance: INOSINE PRANOBEX
     Dosage: ORALLY, 4 TIMES/DAY FOR 10 DAYS
     Route: 048
  3. NAPHAZOLINE [Concomitant]
     Active Substance: NAPHAZOLINE\NAPHAZOLINE HYDROCHLORIDE
     Indication: PRODUCT USED FOR UNKNOWN INDICATION
     Dosage: 1 DROP, IN EACH NASAL PASSAGE, THREE TIMES A DAY FOR 3 DAYS
     Route: 045
  4. CEFTRIAXONE. [Concomitant]
     Active Substance: CEFTRIAXONE
     Indication: PRODUCT USED FOR UNKNOWN INDICATION
     Dosage: 1 MILLION U?ONCE A DAY FOR 8 DAYS
     Route: 030
  5. DICLOFENAC [Concomitant]
     Active Substance: DICLOFENAC
     Indication: HEADACHE
     Dosage: 25 MG, ORALLY
     Route: 048
  6. ACICLOVIR [Concomitant]
     Active Substance: ACYCLOVIR
     Indication: PRODUCT USED FOR UNKNOWN INDICATION
     Dosage: 200 MG, 5 TIMES/DAY FOR 5 DAYS
     Route: 065
  7. DEXAMETHASONE\NEOMYCIN\POLYMYXIN B [Concomitant]
     Active Substance: DEXAMETHASONE\NEOMYCIN\POLYMYXIN B
     Indication: PRODUCT USED FOR UNKNOWN INDICATION
     Dosage: 2 DROPS INTO EACH NASAL PASSAGE, THREE TIMES A DAY FOR 5 DAYS
     Route: 045
  8. RADIOTHERAPY [Concomitant]
     Active Substance: RADIATION THERAPY
     Indication: NASOPHARYNGEAL CANCER
     Dosage: CARRIED OUT TO THE AREA OF THE AFFECTED LYMPH NODES AND THE AREA OF INITIAL TUMOR SPREAD: A SINGLE F
     Route: 065
     Dates: start: 201807
  9. IMMUNOGLOBULIN HUMAN NORMAL [Concomitant]
     Active Substance: HUMAN IMMUNOGLOBULIN G
     Indication: PRODUCT USED FOR UNKNOWN INDICATION
     Dosage: (IGG + IGM + IGA)
     Route: 065
  10. CISPLATIN (MANUFACTURER UNKNOWN) [Suspect]
     Active Substance: CISPLATIN
     Indication: NASOPHARYNGEAL CANCER
     Dosage: SINGLE DOSE
     Route: 065
  11. FLUOROURACIL. [Suspect]
     Active Substance: FLUOROURACIL
     Indication: NASOPHARYNGEAL CANCER
     Dosage: SINGLE DOSE
     Route: 065
  12. RADIOTHERAPY [Concomitant]
     Active Substance: RADIATION THERAPY
     Dosage: RADIATION EPIDERMIS OF THE NECK
     Route: 065
  13. MEGLUMINE ACRIDONACETATE [Concomitant]
     Indication: PRODUCT USED FOR UNKNOWN INDICATION
     Dosage: TEN INTRAMUSCULAR INJECTIONS
     Route: 030
  14. CEFIXIME. [Concomitant]
     Active Substance: CEFIXIME
     Indication: PRODUCT USED FOR UNKNOWN INDICATION
     Dosage: 376 MG, ONCE A DAY
     Route: 048
  15. ALCOHOL. [Concomitant]
     Active Substance: ALCOHOL
     Indication: PRODUCT USED FOR UNKNOWN INDICATION
     Dosage: 0.067 PERCENT 1 DROP INTO EACH EAR, THREE TIMES A DAY?NITROFURAL + ETHANOL
     Route: 065
  16. INTERFERON ALFA?2B [Concomitant]
     Active Substance: INTERFERON ALFA-2B
     Indication: PRODUCT USED FOR UNKNOWN INDICATION
     Dosage: 500,000 U?TWICE A DAY FOR 10 DAYS
     Route: 065
  17. INOSINE PRANOBEX [Concomitant]
     Active Substance: INOSINE PRANOBEX
     Indication: PRODUCT USED FOR UNKNOWN INDICATION
     Dosage: ORALLY 4 TIMES/DAY FOR 8 DAYS
     Route: 048
  18. NITROFURAL [Concomitant]
     Indication: PRODUCT USED FOR UNKNOWN INDICATION
     Dosage: 0.067 PERCENT 1 DROP INTO EACH EAR, THREE TIMES A DAY?NITROFURAL + ETHANOL
     Route: 065

REACTIONS (5)
  - Mouth ulceration [Unknown]
  - Haematotoxicity [Unknown]
  - Stomatitis [Unknown]
  - Thrombosis [Unknown]
  - Neutropenia [Unknown]
